FAERS Safety Report 9603777 (Version 2)
Quarter: 2014Q1

REPORT INFORMATION
  Report Type: Spontaneous
  Country: DO (occurrence: DO)
  Receive Date: 20131007
  Receipt Date: 20140225
  Transmission Date: 20141002
  Serious: Yes (Death)
  Sender: FDA-Public Use
  Company Number: DO-ROCHE-1285296

PATIENT
  Age: 69 Year
  Sex: Female
  Weight: 70.37 kg

DRUGS (5)
  1. MABTHERA [Suspect]
     Indication: B-CELL LYMPHOMA
     Route: 042
     Dates: start: 20120820, end: 20130326
  2. CYCLOPHOSPHAMIDE [Concomitant]
     Indication: B-CELL LYMPHOMA
     Route: 065
     Dates: start: 20120820
  3. VINCRISTINE [Concomitant]
     Indication: B-CELL LYMPHOMA
     Route: 042
  4. DOXORUBICIN [Concomitant]
     Indication: B-CELL LYMPHOMA
     Route: 042
  5. PREDNISONE [Concomitant]
     Indication: B-CELL LYMPHOMA
     Route: 048

REACTIONS (2)
  - Liver disorder [Fatal]
  - Gastrointestinal haemorrhage [Fatal]
